FAERS Safety Report 16599138 (Version 1)
Quarter: 2019Q3

REPORT INFORMATION
  Report Type: Spontaneous
  Country: JP (occurrence: JP)
  Receive Date: 20190719
  Receipt Date: 20190719
  Transmission Date: 20191004
  Serious: Yes (Other)
  Sender: FDA-Public Use
  Company Number: JP-PFIZER INC-2019075922

PATIENT
  Age: 76 Year
  Sex: Male
  Weight: 66 kg

DRUGS (4)
  1. SUTENT [Suspect]
     Active Substance: SUNITINIB MALATE
     Dosage: 25 MG, 1X/DAY
     Route: 048
     Dates: start: 20190220, end: 20190305
  2. SUTENT [Suspect]
     Active Substance: SUNITINIB MALATE
     Indication: RENAL CANCER METASTATIC
     Dosage: 37.5 MG, 1X/DAY
     Route: 048
     Dates: start: 20190109, end: 20190205
  3. SUTENT [Suspect]
     Active Substance: SUNITINIB MALATE
     Dosage: 25 MG, 1X/DAY
     Route: 048
     Dates: start: 20190313, end: 20190326
  4. SUTENT [Suspect]
     Active Substance: SUNITINIB MALATE
     Dosage: 25 MG, CYCLIC (ON 2-WEEKS-ON AND 1-WEEK-OFF)
     Route: 048
     Dates: start: 20190403

REACTIONS (3)
  - Platelet count decreased [Recovering/Resolving]
  - Blood creatine phosphokinase increased [Unknown]
  - Haemorrhagic diathesis [Unknown]

NARRATIVE: CASE EVENT DATE: 20190130
